FAERS Safety Report 4524400-4 (Version None)
Quarter: 2004Q4

REPORT INFORMATION
  Report Type: 
  Country: None (occurrence: None)
  Receive Date: 20041123
  Receipt Date: 20040401
  Transmission Date: 20050328
  Serious: Yes (Hospitalization)
  Sender: FDA-Public Use
  Company Number: NSADSS2001031919

PATIENT
  Age: 43 Year
  Sex: Female
  Weight: 79.3795 kg

DRUGS (14)
  1. PROPULSID [Suspect]
     Indication: GASTROOESOPHAGEAL REFLUX DISEASE
     Dosage: SEE IMAGE
     Route: 048
     Dates: start: 19970102, end: 19991011
  2. PROPULSID [Suspect]
     Indication: GASTROOESOPHAGEAL REFLUX DISEASE
     Dosage: SEE IMAGE
     Route: 048
     Dates: start: 19960802
  3. BIAXIN [Concomitant]
  4. CIPRO [Concomitant]
  5. ERYTHROCIN [Concomitant]
  6. ZOLOFT [Concomitant]
  7. CARDIZEM [Concomitant]
  8. NORVASC [Concomitant]
  9. DYAZIDE [Concomitant]
  10. LASIX [Concomitant]
  11. PLENDIL [Concomitant]
  12. ALUPENT [Concomitant]
  13. PRILOSEC [Concomitant]
  14. CLARITIN [Concomitant]

REACTIONS (3)
  - CHEST PAIN [None]
  - LOSS OF CONSCIOUSNESS [None]
  - MEDICATION ERROR [None]
